FAERS Safety Report 11631881 (Version 18)
Quarter: 2019Q3

REPORT INFORMATION
  Report Type: Spontaneous
  Country: CA (occurrence: CA)
  Receive Date: 20151015
  Receipt Date: 20190709
  Transmission Date: 20191004
  Serious: Yes (Hospitalization, Other)
  Sender: FDA-Public Use
  Company Number: CA-ROCHE-1645962

PATIENT
  Age: 71 Year
  Sex: Female

DRUGS (18)
  1. XOLAIR [Suspect]
     Active Substance: OMALIZUMAB
     Route: 058
     Dates: start: 20180419
  2. SALBUTAMOL [Concomitant]
     Active Substance: ALBUTEROL
     Indication: PRODUCT USED FOR UNKNOWN INDICATION
     Route: 065
  3. XOLAIR [Suspect]
     Active Substance: OMALIZUMAB
     Route: 058
     Dates: start: 20180125
  4. XOLAIR [Suspect]
     Active Substance: OMALIZUMAB
     Route: 058
     Dates: start: 20160524
  5. XOLAIR [Suspect]
     Active Substance: OMALIZUMAB
     Route: 058
     Dates: start: 20171212
  6. XOLAIR [Suspect]
     Active Substance: OMALIZUMAB
     Route: 058
     Dates: start: 20190502
  7. XOLAIR [Suspect]
     Active Substance: OMALIZUMAB
     Route: 058
     Dates: start: 20190530
  8. OMNARIS [Concomitant]
     Active Substance: CICLESONIDE
     Indication: PRODUCT USED FOR UNKNOWN INDICATION
     Route: 065
  9. XOLAIR [Suspect]
     Active Substance: OMALIZUMAB
     Route: 058
     Dates: start: 20180808
  10. XOLAIR [Suspect]
     Active Substance: OMALIZUMAB
     Route: 058
     Dates: start: 20180905, end: 20180905
  11. TUDORZA PRESSAIR [Suspect]
     Active Substance: ACLIDINIUM BROMIDE
     Indication: PRODUCT USED FOR UNKNOWN INDICATION
     Route: 065
  12. XOLAIR [Suspect]
     Active Substance: OMALIZUMAB
     Route: 058
     Dates: start: 20171010
  13. FORADIL [Concomitant]
     Active Substance: FORMOTEROL FUMARATE
     Indication: PRODUCT USED FOR UNKNOWN INDICATION
     Route: 065
  14. XOLAIR [Suspect]
     Active Substance: OMALIZUMAB
     Indication: ASTHMA
     Route: 058
     Dates: start: 20141124, end: 2016
  15. XOLAIR [Suspect]
     Active Substance: OMALIZUMAB
     Route: 058
     Dates: start: 2019
  16. PULMICORT TURBUHALER [Concomitant]
     Active Substance: BUDESONIDE
     Indication: PRODUCT USED FOR UNKNOWN INDICATION
     Route: 065
  17. SINGULAIR [Concomitant]
     Active Substance: MONTELUKAST SODIUM
     Indication: PRODUCT USED FOR UNKNOWN INDICATION
     Route: 065
  18. PREDNISONE. [Concomitant]
     Active Substance: PREDNISONE
     Indication: COUGH

REACTIONS (29)
  - Forced expiratory volume decreased [Not Recovered/Not Resolved]
  - Gait inability [Unknown]
  - Infection [Unknown]
  - Sensitivity to weather change [Unknown]
  - Breath sounds abnormal [Unknown]
  - Dyspnoea [Not Recovered/Not Resolved]
  - Hiatus hernia [Unknown]
  - Heart rate increased [Unknown]
  - Blood pressure increased [Not Recovered/Not Resolved]
  - Aspiration [Unknown]
  - Diarrhoea [Unknown]
  - Malaise [Unknown]
  - Asthma [Not Recovered/Not Resolved]
  - Blood pressure decreased [Unknown]
  - Cough [Not Recovered/Not Resolved]
  - Pulmonary mass [Unknown]
  - Oropharyngeal pain [Unknown]
  - Weight decreased [Unknown]
  - Wheezing [Unknown]
  - Drug ineffective [Unknown]
  - Pancreatic calcification [Unknown]
  - Obstructive airways disorder [Unknown]
  - Vomiting [Unknown]
  - Localised infection [Unknown]
  - Chronic sinusitis [Unknown]
  - Abdominal discomfort [Unknown]
  - Dysphagia [Recovered/Resolved]
  - Renal cyst [Unknown]
  - Respiratory tract congestion [Unknown]

NARRATIVE: CASE EVENT DATE: 20150924
